FAERS Safety Report 16396426 (Version 3)
Quarter: 2022Q1

REPORT INFORMATION
  Report Type: Spontaneous
  Country: US (occurrence: None)
  Receive Date: 20190605
  Receipt Date: 20220225
  Transmission Date: 20220424
  Serious: Yes (Other)
  Sender: FDA-Public Use
  Company Number: 2019SE11627

PATIENT
  Age: 52 Year
  Sex: Female
  Weight: 113.4 kg

DRUGS (64)
  1. NEXIUM [Suspect]
     Active Substance: ESOMEPRAZOLE MAGNESIUM
     Indication: Gastrooesophageal reflux disease
     Route: 048
     Dates: start: 19980101
  2. NEXIUM [Suspect]
     Active Substance: ESOMEPRAZOLE MAGNESIUM
     Indication: Gastrooesophageal reflux disease
     Route: 048
     Dates: start: 2005, end: 2017
  3. NEXIUM [Suspect]
     Active Substance: ESOMEPRAZOLE MAGNESIUM
     Indication: Gastrooesophageal reflux disease
     Dosage: GENERIC
     Route: 065
     Dates: start: 2017
  4. PRILOSEC [Suspect]
     Active Substance: OMEPRAZOLE MAGNESIUM
     Indication: Gastrooesophageal reflux disease
     Route: 048
     Dates: start: 19980101
  5. PRILOSEC [Suspect]
     Active Substance: OMEPRAZOLE MAGNESIUM
     Indication: Gastrooesophageal reflux disease
     Route: 048
     Dates: start: 1998, end: 2008
  6. PRILOSEC [Suspect]
     Active Substance: OMEPRAZOLE MAGNESIUM
     Indication: Gastrooesophageal reflux disease
     Dosage: GENERIC
     Route: 065
     Dates: start: 2009, end: 2011
  7. PRILOSEC OTC [Suspect]
     Active Substance: OMEPRAZOLE MAGNESIUM
     Indication: Gastrooesophageal reflux disease
     Route: 048
     Dates: start: 19980101
  8. PRILOSEC OTC [Suspect]
     Active Substance: OMEPRAZOLE MAGNESIUM
     Indication: Gastrooesophageal reflux disease
     Dosage: DAILY
     Route: 048
     Dates: start: 2001, end: 2006
  9. VITAMIN D [Concomitant]
     Active Substance: VITAMIN D NOS
     Indication: Supplementation therapy
     Dates: start: 2010
  10. OMEGA 3 [Concomitant]
     Active Substance: CAPSAICIN
     Indication: Supplementation therapy
     Dates: start: 2010
  11. METOPROLOL [Concomitant]
     Active Substance: METOPROLOL
     Indication: Hypertension
     Dates: start: 20210227
  12. LOTENSIN [Concomitant]
     Active Substance: BENAZEPRIL HYDROCHLORIDE
     Indication: Hypertension
  13. AMITRIPTYLINE [Concomitant]
     Active Substance: AMITRIPTYLINE
     Indication: Nervous system disorder
  14. LOSARTAN [Concomitant]
     Active Substance: LOSARTAN
     Indication: Hypertension
  15. LIPITOR [Concomitant]
     Active Substance: ATORVASTATIN CALCIUM
     Indication: Hyperlipidaemia
  16. SIMVASTATIN [Concomitant]
     Active Substance: SIMVASTATIN
     Indication: Hyperlipidaemia
  17. SPIRONOLACTONE [Concomitant]
     Active Substance: SPIRONOLACTONE
  18. LORAZEPAM [Concomitant]
     Active Substance: LORAZEPAM
  19. SERTRALINE [Concomitant]
     Active Substance: SERTRALINE HYDROCHLORIDE
     Dates: start: 20210920
  20. MESALAMINE [Concomitant]
     Active Substance: MESALAMINE
  21. ALLOPURINOL [Concomitant]
     Active Substance: ALLOPURINOL
     Dates: start: 20211122
  22. METHADONE HYDROCHLORIDE [Concomitant]
     Active Substance: METHADONE HYDROCHLORIDE
     Dates: start: 20201117
  23. ARIPIPRAZOLE [Concomitant]
     Active Substance: ARIPIPRAZOLE
  24. ROPINIROLE [Concomitant]
     Active Substance: ROPINIROLE
     Dates: start: 20211215
  25. ZOLPIDEM [Concomitant]
     Active Substance: ZOLPIDEM TARTRATE
     Dates: start: 20201022
  26. NYAMYC [Concomitant]
     Active Substance: NYSTATIN
     Dates: start: 20210702
  27. VASCEPA [Concomitant]
     Active Substance: ICOSAPENT ETHYL
     Dates: start: 20210702
  28. CEFPROZIL [Concomitant]
     Active Substance: CEFPROZIL
     Dates: start: 20131002
  29. TRIAMCINOLONE [Concomitant]
     Active Substance: TRIAMCINOLONE
     Dates: start: 20201022
  30. FUROSEMIDE [Concomitant]
     Active Substance: FUROSEMIDE
     Dates: start: 20190227
  31. CALCIUM CITRATE [Concomitant]
     Active Substance: CALCIUM CITRATE
  32. CARBIDOPA\LEVODOPA [Concomitant]
     Active Substance: CARBIDOPA\LEVODOPA
  33. DULOXETINE [Concomitant]
     Active Substance: DULOXETINE
  34. GEMFIBROZIL [Concomitant]
     Active Substance: GEMFIBROZIL
  35. DEVICE [Concomitant]
     Active Substance: DEVICE
  36. BENICAR [Concomitant]
     Active Substance: OLMESARTAN MEDOXOMIL
  37. VITAMINS [Concomitant]
     Active Substance: VITAMINS
  38. LOVENOX [Concomitant]
     Active Substance: ENOXAPARIN SODIUM
  39. LORATADINE [Concomitant]
     Active Substance: LORATADINE
  40. VICODIN [Concomitant]
     Active Substance: ACETAMINOPHEN\HYDROCODONE BITARTRATE
  41. OXYCODONE [Concomitant]
     Active Substance: OXYCODONE
  42. ASPIRIN [Concomitant]
     Active Substance: ASPIRIN
  43. PAROXETINE HYDROCHLORIDE [Concomitant]
     Active Substance: PAROXETINE HYDROCHLORIDE
  44. ANCEF [Concomitant]
     Active Substance: CEFAZOLIN SODIUM
  45. DILAUDID [Concomitant]
     Active Substance: HYDROMORPHONE HYDROCHLORIDE
  46. FENTANYL [Concomitant]
     Active Substance: FENTANYL
  47. DIAZEPAM [Concomitant]
     Active Substance: DIAZEPAM
  48. LIDOCAINE [Concomitant]
     Active Substance: LIDOCAINE
  49. DOCUSATE SODIUM [Concomitant]
     Active Substance: DOCUSATE SODIUM
  50. ACETAMINOPHEN\HYDROCODONE BITARTRATE [Concomitant]
     Active Substance: ACETAMINOPHEN\HYDROCODONE BITARTRATE
  51. ALBUTEROL [Concomitant]
     Active Substance: ALBUTEROL
  52. ALENDRONATE [Concomitant]
     Active Substance: ALENDRONATE SODIUM
  53. AMLODIPINE [Concomitant]
     Active Substance: AMLODIPINE BESYLATE
     Dates: start: 20100412
  54. IODINE [Concomitant]
     Active Substance: IODINE
  55. MEPERIDINE [Concomitant]
     Active Substance: MEPERIDINE
  56. ASCORBIC ACID [Concomitant]
     Active Substance: ASCORBIC ACID
  57. BUSPIRONE HYDROCHLORIDE [Concomitant]
     Active Substance: BUSPIRONE HYDROCHLORIDE
  58. FEXOFENADINE HYDROCHLORIDE [Concomitant]
     Active Substance: FEXOFENADINE HYDROCHLORIDE
  59. OMEGA-3 ACIDS [Concomitant]
     Active Substance: OMEGA-3 FATTY ACIDS
  60. SALINE [Concomitant]
     Active Substance: SODIUM CHLORIDE
  61. DIPHENHYDRAMINE [Concomitant]
     Active Substance: DIPHENHYDRAMINE
  62. AMITRIPTYLINE [Concomitant]
     Active Substance: AMITRIPTYLINE
  63. CODEINE\GUAIFENESIN [Concomitant]
     Active Substance: CODEINE\GUAIFENESIN
  64. NICOTINE [Concomitant]
     Active Substance: NICOTINE

REACTIONS (6)
  - Chronic kidney disease [Not Recovered/Not Resolved]
  - End stage renal disease [Unknown]
  - Acute kidney injury [Unknown]
  - Chronic kidney disease-mineral and bone disorder [Unknown]
  - Renal failure [Unknown]
  - Hyperkalaemia [Unknown]

NARRATIVE: CASE EVENT DATE: 20080101
